FAERS Safety Report 4610506-8 (Version None)
Quarter: 2005Q2

REPORT INFORMATION
  Report Type: 
  Country: None (occurrence: None)
  Receive Date: 20050301
  Receipt Date: 20041209
  Transmission Date: 20051028
  Serious: No
  Sender: FDA-Public Use
  Company Number: WAES 0412USA01146

PATIENT
  Sex: Female

DRUGS (1)
  1. ZETIA [Suspect]
     Dosage: PO
     Route: 048
     Dates: start: 20040501, end: 20040930

REACTIONS (4)
  - EYE PRURITUS [None]
  - NASAL DISCOMFORT [None]
  - PRURITUS [None]
  - RASH [None]
